FAERS Safety Report 6263929-8 (Version None)
Quarter: 2009Q3

REPORT INFORMATION
  Report Type: 
  Country: None (occurrence: None)
  Receive Date: 20090710
  Receipt Date: 20090617
  Transmission Date: 20100115
  Serious: Yes (Hospitalization)
  Sender: FDA-Public Use
  Company Number: NZ-AVENTIS-200916624GDDC

PATIENT
  Age: 41 Year
  Sex: Female

DRUGS (5)
  1. LEFLUNOMIDE [Suspect]
     Route: 048
     Dates: start: 20020515, end: 20020525
  2. DEPO-PROVERA [Suspect]
  3. LEVOTHYROXINE SODIUM [Concomitant]
     Route: 048
  4. SULFASALAZINE [Concomitant]
     Route: 048
  5. NIFEDIPINE [Concomitant]
     Route: 048

REACTIONS (2)
  - BONE PAIN [None]
  - THROMBOSIS MESENTERIC VESSEL [None]
